FAERS Safety Report 11929558 (Version 1)
Quarter: 2016Q1

REPORT INFORMATION
  Report Type: Spontaneous
  Country: US (occurrence: US)
  Receive Date: 20160120
  Receipt Date: 20160120
  Transmission Date: 20160526
  Serious: No
  Sender: FDA-Public Use
  Company Number: US-BAYER-2016-011203

PATIENT
  Age: 65 Year
  Sex: Male
  Weight: 88.44 kg

DRUGS (2)
  1. ALEVE [Suspect]
     Active Substance: NAPROXEN SODIUM
     Indication: MYALGIA
     Dosage: 1 DF, UNK
     Route: 048
  2. ALEVE [Suspect]
     Active Substance: NAPROXEN SODIUM
     Indication: MYALGIA
     Dosage: 4 DF, WITHIN 2 HOURS
     Route: 048
     Dates: start: 20160118, end: 20160118

REACTIONS (2)
  - Product use issue [None]
  - Expired product administered [None]

NARRATIVE: CASE EVENT DATE: 20160118
